FAERS Safety Report 13573618 (Version 1)
Quarter: 2017Q2

REPORT INFORMATION
  Report Type: Spontaneous
  Country: US (occurrence: US)
  Receive Date: 20170523
  Receipt Date: 20170523
  Transmission Date: 20170830
  Serious: Yes (Hospitalization)
  Sender: FDA-Public Use
  Company Number: US-PRAGMA PHARMACEUTICALS, LLC-2017PRG00046

PATIENT
  Age: 53 Year
  Sex: Female
  Weight: 89.34 kg

DRUGS (2)
  1. KEFLEX [Suspect]
     Active Substance: CEPHALEXIN
     Indication: INFECTION
     Dosage: UNK
     Dates: start: 201704, end: 201704
  2. BENADRYL [Concomitant]
     Active Substance: DIPHENHYDRAMINE HYDROCHLORIDE
     Indication: PRURITUS
     Dosage: UNK
     Dates: start: 201704

REACTIONS (4)
  - Cellulitis [Recovering/Resolving]
  - Drug ineffective [Recovered/Resolved]
  - Skin disorder [Unknown]
  - Swelling [Unknown]

NARRATIVE: CASE EVENT DATE: 201704
